FAERS Safety Report 4364902-7 (Version None)
Quarter: 2004Q2

REPORT INFORMATION
  Report Type: 
  Country: None (occurrence: None)
  Receive Date: 20040525
  Receipt Date: 20040525
  Transmission Date: 20050107
  Serious: Yes (Hospitalization)
  Sender: FDA-Public Use
  Company Number: None

PATIENT
  Sex: Female
  Weight: 67.586 kg

DRUGS (11)
  1. TAXOTERE [Suspect]
     Indication: BREAST CANCER
     Dosage: 63 MG D1 AND 8 Q3WKS INTRAVENOUS
     Route: 042
     Dates: start: 20040518, end: 20040518
  2. XELODA [Suspect]
     Dosage: 1150 MG D1-14 Q 3 WKS ORAL
     Route: 048
     Dates: start: 20040511, end: 20040524
  3. KEFLEX [Concomitant]
  4. ARANESP [Concomitant]
  5. COMPAZINE [Concomitant]
  6. PAXIL [Concomitant]
  7. PYRIDOXINE [Concomitant]
  8. VITAMIN B6 [Concomitant]
  9. MULTI-VITAMIN [Concomitant]
  10. LESCOL [Concomitant]
  11. MARYS MAGIC POTION [Concomitant]

REACTIONS (10)
  - ANXIETY [None]
  - ASTHENIA [None]
  - CHEILITIS [None]
  - DEHYDRATION [None]
  - DIARRHOEA [None]
  - ERYTHEMA [None]
  - HYPERLIPIDAEMIA [None]
  - JOINT SWELLING [None]
  - PANCYTOPENIA [None]
  - PYREXIA [None]
